FAERS Safety Report 4496296-0 (Version None)
Quarter: 2004Q4

REPORT INFORMATION
  Report Type: 
  Country: None (occurrence: None)
  Receive Date: 20041108
  Receipt Date: 20041108
  Transmission Date: 20050328
  Serious: Yes (Other)
  Sender: FDA-Public Use
  Company Number: None

PATIENT
  Age: 46 Year
  Sex: Male
  Weight: 90.7194 kg

DRUGS (2)
  1. CIALIS [Suspect]
     Indication: ERECTILE DYSFUNCTION
     Dosage: ONCE
     Dates: start: 20041106, end: 20041106
  2. CYMBALTA [Suspect]
     Indication: DEPRESSION
     Dosage: EVERYDAY
     Dates: start: 20040830, end: 20041106

REACTIONS (9)
  - DRUG INEFFECTIVE [None]
  - DYSPEPSIA [None]
  - EYE PAIN [None]
  - EYE REDNESS [None]
  - FEELING ABNORMAL [None]
  - FLUSHING [None]
  - HEADACHE [None]
  - HEART RATE INCREASED [None]
  - INFLUENZA LIKE ILLNESS [None]
